FAERS Safety Report 5495564-3 (Version None)
Quarter: 2007Q4

REPORT INFORMATION
  Report Type: 
  Country: None (occurrence: None)
  Receive Date: 20071025
  Receipt Date: 20071017
  Transmission Date: 20080405
  Serious: Yes (Other)
  Sender: FDA-Public Use
  Company Number: PHBS2007BR17338

PATIENT
  Sex: Female

DRUGS (1)
  1. FORASEQ [Suspect]
     Dosage: UNK, BID
     Dates: start: 20071011

REACTIONS (8)
  - DEVICE FAILURE [None]
  - DIABETES MELLITUS [None]
  - HYPERHIDROSIS [None]
  - INSOMNIA [None]
  - IRRITABILITY [None]
  - MYDRIASIS [None]
  - NERVOUSNESS [None]
  - VISUAL DISTURBANCE [None]
